FAERS Safety Report 8482206-8 (Version None)
Quarter: 2012Q3

REPORT INFORMATION
  Report Type: 
  Country: None (occurrence: None)
  Receive Date: 20120702
  Receipt Date: 20120622
  Transmission Date: 20120928
  Serious: Yes (Other)
  Sender: FDA-Public Use
  Company Number: US-FRI-1000027723

PATIENT
  Sex: Female

DRUGS (6)
  1. GABAPENTIN [Concomitant]
     Indication: NEUROPATHY PERIPHERAL
  2. VIIBRYD [Suspect]
     Dosage: 20 MG EVERY OTHER DAY
     Route: 048
     Dates: start: 20120130, end: 20120131
  3. KLONOPIN [Concomitant]
     Indication: ANXIETY
     Dosage: 0.5 MG TID AS NEEDED
  4. PERCOCET [Concomitant]
     Indication: PAIN
  5. VIIBRYD [Suspect]
     Indication: DEPRESSION
     Dosage: 20 MG
     Route: 048
     Dates: start: 20120120, end: 20120129
  6. SYNTHROID [Concomitant]
     Indication: HYPOTHYROIDISM

REACTIONS (5)
  - CRYING [None]
  - SCREAMING [None]
  - INSOMNIA [None]
  - SUICIDAL IDEATION [None]
  - ANGER [None]
